FAERS Safety Report 5408465-3 (Version None)
Quarter: 2007Q3

REPORT INFORMATION
  Report Type: 
  Country: None (occurrence: None)
  Receive Date: 20070808
  Receipt Date: 20070802
  Transmission Date: 20080115
  Serious: Yes (Other)
  Sender: FDA-Public Use
  Company Number: AU-JNJFOC-20070605242

PATIENT
  Sex: Male

DRUGS (3)
  1. RISPERDAL [Suspect]
     Indication: PSYCHOTIC DISORDER
  2. THIAMINE [Concomitant]
  3. MULTI-VITAMIN [Concomitant]

REACTIONS (1)
  - GLAUCOMA [None]
